FAERS Safety Report 11918275 (Version 1)
Quarter: 2016Q1

REPORT INFORMATION
  Report Type: Report from Study
  Country: CA (occurrence: CA)
  Receive Date: 20160115
  Receipt Date: 20160115
  Transmission Date: 20160526
  Serious: Yes (Life-Threatening, Hospitalization)
  Sender: FDA-Public Use
  Company Number: CA-ROCHE-ITM201506IM017319

PATIENT
  Age: 86 Year
  Sex: Female
  Weight: 68 kg

DRUGS (9)
  1. ESBRIET [Suspect]
     Active Substance: PIRFENIDONE
     Route: 048
     Dates: start: 20150225
  2. ESBRIET [Suspect]
     Active Substance: PIRFENIDONE
     Route: 048
     Dates: start: 20150304
  3. APO-HYDRO [Concomitant]
     Active Substance: HYDROCHLOROTHIAZIDE
  4. ESBRIET [Suspect]
     Active Substance: PIRFENIDONE
     Route: 048
     Dates: start: 20150501
  5. MOTILIUM [Concomitant]
     Active Substance: DOMPERIDONE
  6. PANTOLOC [Concomitant]
     Active Substance: PANTOPRAZOLE SODIUM
  7. ESBRIET [Suspect]
     Active Substance: PIRFENIDONE
     Indication: IDIOPATHIC PULMONARY FIBROSIS
     Route: 048
     Dates: start: 20150218
  8. AVAPRO [Concomitant]
     Active Substance: IRBESARTAN
  9. METAMUCIL [Concomitant]
     Active Substance: PLANTAGO SEED

REACTIONS (4)
  - Lip blister [Recovering/Resolving]
  - Sunburn [Recovering/Resolving]
  - Myocardial infarction [Unknown]
  - Photosensitivity reaction [Unknown]

NARRATIVE: CASE EVENT DATE: 201505
